FAERS Safety Report 15674773 (Version 3)
Quarter: 2019Q1

REPORT INFORMATION
  Report Type: Spontaneous
  Country: US (occurrence: US)
  Receive Date: 20181130
  Receipt Date: 20190121
  Transmission Date: 20190417
  Serious: Yes (Life-Threatening)
  Sender: FDA-Public Use
  Company Number: US-ASTRAZENECA-2018SF54305

PATIENT
  Age: 926 Month
  Sex: Male
  Weight: 90.7 kg

DRUGS (1)
  1. SYMBICORT [Suspect]
     Active Substance: BUDESONIDE\FORMOTEROL FUMARATE DIHYDRATE
     Indication: PULMONARY FIBROSIS
     Dosage: 160MCG/4.5MCG,TWO INHALATIONS TWO TIMES A DAY
     Route: 055
     Dates: start: 201803

REACTIONS (7)
  - Product use in unapproved indication [Not Recovered/Not Resolved]
  - Dyspnoea [Not Recovered/Not Resolved]
  - Bronchitis chronic [Unknown]
  - Off label use [Not Recovered/Not Resolved]
  - Device malfunction [Unknown]
  - Malaise [Not Recovered/Not Resolved]
  - Product use issue [Unknown]

NARRATIVE: CASE EVENT DATE: 201803
